FAERS Safety Report 21805209 (Version 2)
Quarter: 2023Q1

REPORT INFORMATION
  Report Type: Spontaneous
  Country: IT (occurrence: IT)
  Receive Date: 20230102
  Receipt Date: 20230111
  Transmission Date: 20230418
  Serious: Yes (Other)
  Sender: FDA-Public Use
  Company Number: None

PATIENT
  Age: 69 Year
  Sex: Male
  Weight: 85 kg

DRUGS (2)
  1. ENTYVIO [Suspect]
     Active Substance: VEDOLIZUMAB
     Indication: Colitis ulcerative
     Dosage: UNK
     Route: 058
     Dates: start: 20200406, end: 20211201
  2. ENTYVIO [Suspect]
     Active Substance: VEDOLIZUMAB
     Dosage: 108 MILLIGRAM
     Route: 058
     Dates: start: 20220126, end: 20221114

REACTIONS (4)
  - Bladder transitional cell carcinoma stage I [Unknown]
  - Transitional cell carcinoma recurrent [Unknown]
  - Neoplasm recurrence [Unknown]
  - Transitional cell carcinoma [Unknown]

NARRATIVE: CASE EVENT DATE: 20220924
